FAERS Safety Report 5746171-6 (Version None)
Quarter: 2008Q2

REPORT INFORMATION
  Report Type: 
  Country: None (occurrence: None)
  Receive Date: 20080520
  Receipt Date: 20080514
  Transmission Date: 20081010
  Serious: Yes (Other)
  Sender: FDA-Public Use
  Company Number: 2005-11-1698

PATIENT
  Age: 69 Year
  Sex: Male

DRUGS (5)
  1. RIBAVIRIN [Suspect]
     Indication: HEPATITIS C
     Dosage: 800 MG; BID; PO
     Route: 048
     Dates: start: 20021206
  2. INTERFERON ALFA (MANUFACTURER UNKNOWN) (INTERFERON 2 ALFA-2B) [Suspect]
     Indication: HEPATITIS C
     Dosage: SEE IMAGE
     Dates: start: 20020401, end: 20020101
  3. INTERFERON ALFA (MANUFACTURER UNKNOWN) (INTERFERON 2 ALFA-2B) [Suspect]
     Indication: HEPATITIS C
     Dosage: SEE IMAGE
     Dates: start: 20021206, end: 20021219
  4. INTERFERON ALFA (MANUFACTURER UNKNOWN) (INTERFERON 2 ALFA-2B) [Suspect]
     Indication: HEPATITIS C
     Dosage: SEE IMAGE
     Dates: start: 20020401
  5. INTERFERON ALFA (MANUFACTURER UNKNOWN) (INTERFERON 2 ALFA-2B) [Suspect]
     Indication: HEPATITIS C
     Dosage: SEE IMAGE
     Dates: start: 20021220

REACTIONS (3)
  - DIPLOPIA [None]
  - MYASTHENIA GRAVIS [None]
  - STRABISMUS [None]
